FAERS Safety Report 15331463 (Version 1)
Quarter: 2018Q3

REPORT INFORMATION
  Report Type: Spontaneous
  Country: JP (occurrence: JP)
  Receive Date: 20180829
  Receipt Date: 20180829
  Transmission Date: 20181010
  Serious: Yes (Death, Life-Threatening)
  Sender: FDA-Public Use
  Company Number: JP-DSJP-DSJ-2018-109582AA

PATIENT

DRUGS (7)
  1. DAIKENCHUTO [Concomitant]
     Active Substance: HERBALS
     Indication: DECREASED APPETITE
     Dosage: 2.5 G, TID
     Route: 048
     Dates: start: 20170428
  2. LIXIANA TABLETS [Suspect]
     Active Substance: EDOXABAN TOSYLATE
     Indication: DEEP VEIN THROMBOSIS
     Dosage: 30 MG, QD
     Route: 048
     Dates: start: 20170610, end: 20170611
  3. HEPARIN [Suspect]
     Active Substance: HEPARIN SODIUM
     Indication: GASTRIC CANCER
     Dosage: 10000 IU, QD
     Route: 042
     Dates: start: 20170610, end: 20170611
  4. HEPARIN [Suspect]
     Active Substance: HEPARIN SODIUM
     Dosage: 20000 IU, QD
     Route: 042
     Dates: start: 20170611, end: 20170612
  5. TAKECAB [Concomitant]
     Active Substance: VONOPRAZAN FUMURATE
     Indication: GASTRIC CANCER
     Dosage: 20 MG, QD
     Route: 048
     Dates: end: 20170611
  6. TS?1 [Concomitant]
     Active Substance: GIMERACIL\OTERACIL\TEGAFUR
     Indication: GASTRIC CANCER
     Dosage: 50 MG, BID
     Route: 048
     Dates: start: 20170606, end: 20170611
  7. MAGMITT [Concomitant]
     Active Substance: MAGNESIUM OXIDE
     Indication: CONSTIPATION
     Dosage: 660 MG, TID
     Route: 048
     Dates: start: 20170520

REACTIONS (2)
  - Gastric cancer [Fatal]
  - Upper gastrointestinal haemorrhage [Recovered/Resolved]

NARRATIVE: CASE EVENT DATE: 20170612
